FAERS Safety Report 6336120-4 (Version None)
Quarter: 2009Q3

REPORT INFORMATION
  Report Type: 
  Country: None (occurrence: None)
  Receive Date: 20090901
  Receipt Date: 20090828
  Transmission Date: 20100115
  Serious: Yes (Death)
  Sender: FDA-Public Use
  Company Number: FR-ASTRAZENECA-2009SE07915

PATIENT
  Age: 25 Year
  Sex: Male

DRUGS (2)
  1. OMEPRAZOLE [Suspect]
     Route: 065
  2. UNSPECIFIED MEDICATIONS [Suspect]
     Route: 065

REACTIONS (1)
  - ANAPHYLACTIC SHOCK [None]
